FAERS Safety Report 22598461 (Version 1)
Quarter: 2023Q2

REPORT INFORMATION
  Report Type: Spontaneous
  Country: NL (occurrence: NL)
  Receive Date: 20230614
  Receipt Date: 20230614
  Transmission Date: 20230722
  Serious: Yes (Hospitalization, Other)
  Sender: FDA-Public Use
  Company Number: NL-UCBSA-2023023034

PATIENT
  Age: 75 Year
  Sex: Female

DRUGS (2)
  1. EVENITY [Suspect]
     Active Substance: ROMOSOZUMAB-AQQG
     Indication: Osteoporosis
     Dosage: 210 MILLIGRAM, QMO, 1X PER MONTH 2 INJECTIONS
     Route: 065
     Dates: start: 20230202
  2. EVENITY [Suspect]
     Active Substance: ROMOSOZUMAB-AQQG
     Dosage: 210 MILLIGRAM, QMO 1X PER MONTH 2 INJECTIONS
     Route: 065
     Dates: start: 20230507

REACTIONS (4)
  - Lower limb fracture [Not Recovered/Not Resolved]
  - Surgery [Not Recovered/Not Resolved]
  - Inappropriate schedule of product administration [Unknown]
  - Fall [Not Recovered/Not Resolved]

NARRATIVE: CASE EVENT DATE: 20230424
